FAERS Safety Report 19114615 (Version 1)
Quarter: 2021Q2

REPORT INFORMATION
  Report Type: Spontaneous
  Country: US (occurrence: US)
  Receive Date: 20210408
  Receipt Date: 20210408
  Transmission Date: 20210717
  Serious: No
  Sender: FDA-Public Use
  Company Number: US-PERRIGO-20US005730

PATIENT
  Sex: Female

DRUGS (4)
  1. LORATADINE. [Concomitant]
     Active Substance: LORATADINE
     Indication: IMMUNODEFICIENCY
  2. PSEUDOEPHEDRINE HYDROCHLORIDE. [Suspect]
     Active Substance: PSEUDOEPHEDRINE HYDROCHLORIDE
     Indication: HYPERSENSITIVITY
     Dosage: UNKNOWN, QD
     Route: 048
  3. PSEUDOEPHEDRINE HYDROCHLORIDE. [Suspect]
     Active Substance: PSEUDOEPHEDRINE HYDROCHLORIDE
     Indication: IMMUNODEFICIENCY
  4. LORATADINE. [Concomitant]
     Active Substance: LORATADINE
     Indication: HYPERSENSITIVITY
     Dosage: UNKNOWN, QD
     Route: 065

REACTIONS (1)
  - Drug effective for unapproved indication [Unknown]
